FAERS Safety Report 8884847 (Version 2)
Quarter: 2012Q4

REPORT INFORMATION
  Report Type: 
  Country: PT (occurrence: PT)
  Receive Date: 20121102
  Receipt Date: 20121116
  Transmission Date: 20130627
  Serious: Yes (Other)
  Sender: FDA-Public Use
  Company Number: PT-JNJFOC-20121014353

PATIENT
  Age: 68 Year
  Sex: Female

DRUGS (2)
  1. REMICADE [Suspect]
     Indication: CROHN^S DISEASE
     Route: 042
  2. MERCAPTOPURINE [Suspect]
     Indication: CROHN^S DISEASE
     Dosage: 0.6 or 0.7 mg/kg
     Route: 065

REACTIONS (1)
  - Lung adenocarcinoma metastatic [Not Recovered/Not Resolved]
